FAERS Safety Report 10688230 (Version 2)
Quarter: 2015Q1

REPORT INFORMATION
  Report Type: Spontaneous
  Country: US (occurrence: US)
  Receive Date: 20150102
  Receipt Date: 20150202
  Transmission Date: 20150720
  Serious: Yes (Other)
  Sender: FDA-Public Use
  Company Number: US-UCBSA-2014023260

PATIENT
  Age: 61 Year
  Sex: Female
  Weight: 49.89 kg

DRUGS (4)
  1. CIMZIA [Suspect]
     Active Substance: CERTOLIZUMAB PEGOL
     Indication: CROHN^S DISEASE
     Dosage: 400 MG, EV 4 WEEKS, INJECTION
     Dates: start: 201410
  2. PENTASA [Concomitant]
     Active Substance: MESALAMINE
     Indication: GASTROINTESTINAL INFLAMMATION
     Dosage: UNK
     Dates: end: 201501
  3. ENTOCORT [Concomitant]
     Active Substance: BUDESONIDE
     Indication: CROHN^S DISEASE
     Dosage: UNK
     Route: 048
  4. METHOTREXATE [Concomitant]
     Active Substance: METHOTREXATE
     Indication: CROHN^S DISEASE
     Dosage: 5 MONTHS AGO

REACTIONS (2)
  - Influenza [Recovered/Resolved]
  - Herpes zoster [Recovered/Resolved]

NARRATIVE: CASE EVENT DATE: 201412
